FAERS Safety Report 14077012 (Version 2)
Quarter: 2017Q4

REPORT INFORMATION
  Report Type: Spontaneous
  Country: US (occurrence: US)
  Receive Date: 20171011
  Receipt Date: 20171015
  Transmission Date: 20180321
  Serious: Yes (Other)
  Sender: FDA-Public Use
  Company Number: US-BEH-2017084193

PATIENT
  Age: 51 Year
  Sex: Female

DRUGS (2)
  1. BERINERT [Suspect]
     Active Substance: HUMAN C1-ESTERASE INHIBITOR
     Indication: PROPHYLAXIS
     Dosage: 1500 IU, TOT
     Route: 042
     Dates: start: 20171008
  2. BERINERT [Suspect]
     Active Substance: HUMAN C1-ESTERASE INHIBITOR
     Indication: HEREDITARY ANGIOEDEMA
     Dosage: 1500 IU, BIW
     Route: 042
     Dates: start: 20121008

REACTIONS (3)
  - Hereditary angioedema [Not Recovered/Not Resolved]
  - Drug ineffective [Not Recovered/Not Resolved]
  - Hereditary angioedema [Unknown]

NARRATIVE: CASE EVENT DATE: 20171005
